FAERS Safety Report 6011037-3 (Version None)
Quarter: 2008Q4

REPORT INFORMATION
  Report Type: 
  Country: None (occurrence: None)
  Receive Date: 20081218
  Receipt Date: 20081208
  Transmission Date: 20090506
  Serious: Yes (Other)
  Sender: FDA-Public Use
  Company Number: CA-PFIZER INC-2008028171

PATIENT

DRUGS (10)
  1. DEPO-TESTOSTERONE [Suspect]
     Indication: OLFACTO GENITAL DYSPLASIA
     Dosage: 100 MG/ML, UNK
     Dates: start: 19820101, end: 20070701
  2. CALCIUM [Concomitant]
  3. HYDROCHLOROTHIAZIDE [Concomitant]
     Dosage: 25 MG, UNK
  4. DIOVAN HCT [Concomitant]
     Dosage: 80/12.5MG
  5. NICODERM [Concomitant]
     Dosage: 14 MG, UNK
  6. CLINDAMYCIN [Concomitant]
     Dosage: 250 MG, UNK
  7. APO-PEN-VK [Concomitant]
     Dosage: 300 MG, UNK
  8. TYLENOL ARTHRITIS EXTENDED RELIEF [Concomitant]
     Dosage: 650 MG, UNK
  9. PMS-CYCLOBENZAPRINE [Concomitant]
     Dosage: 10 MG, UNK
  10. APO-CAL [Concomitant]

REACTIONS (2)
  - AGGRESSION [None]
  - OSTEOPOROSIS [None]
